FAERS Safety Report 7108691-1 (Version None)
Quarter: 2010Q4

REPORT INFORMATION
  Report Type: 
  Country: None (occurrence: None)
  Receive Date: 20101115
  Receipt Date: 20101115
  Transmission Date: 20110411
  Serious: No
  Sender: FDA-Public Use
  Company Number: None

PATIENT
  Age: 55 Year
  Sex: Female
  Weight: 62.5964 kg

DRUGS (1)
  1. ZYCLARA [Suspect]
     Indication: ACTINIC KERATOSIS
     Dosage: APPLY ONCE DAILY

REACTIONS (6)
  - APHTHOUS STOMATITIS [None]
  - IMPAIRED WORK ABILITY [None]
  - LIP SWELLING [None]
  - OPEN WOUND [None]
  - RASH [None]
  - SKIN SWELLING [None]
